FAERS Safety Report 18393443 (Version 1)
Quarter: 2020Q4

REPORT INFORMATION
  Report Type: Spontaneous
  Country: DE (occurrence: DE)
  Receive Date: 20201016
  Receipt Date: 20201016
  Transmission Date: 20210114
  Serious: Yes (Other)
  Sender: FDA-Public Use
  Company Number: DE-PBT-000356

PATIENT
  Age: 37 Year

DRUGS (7)
  1. TACROLIMUS. [Suspect]
     Active Substance: TACROLIMUS
     Indication: ALLOGENIC STEM CELL TRANSPLANTATION
     Route: 065
  2. PREDNISOLONE. [Suspect]
     Active Substance: PREDNISOLONE
     Indication: ALLOGENIC STEM CELL TRANSPLANTATION
     Route: 065
  3. MYCOPHENOLATE MOFETIL. [Suspect]
     Active Substance: MYCOPHENOLATE MOFETIL
     Indication: ALLOGENIC STEM CELL TRANSPLANTATION
     Route: 065
  4. RITUXIMAB. [Suspect]
     Active Substance: RITUXIMAB
     Indication: ALLOGENIC STEM CELL TRANSPLANTATION
     Route: 065
  5. CYCLOPHOSPHAMIDE. [Suspect]
     Active Substance: CYCLOPHOSPHAMIDE
     Indication: ALLOGENIC STEM CELL TRANSPLANTATION
     Route: 065
     Dates: start: 201001, end: 201911
  6. METHOTREXATE. [Suspect]
     Active Substance: METHOTREXATE
     Indication: ALLOGENIC STEM CELL TRANSPLANTATION
     Route: 065
  7. IMATINIB. [Suspect]
     Active Substance: IMATINIB MESYLATE
     Indication: ALLOGENIC STEM CELL TRANSPLANTATION
     Route: 065

REACTIONS (3)
  - Chronic graft versus host disease [Unknown]
  - Product use in unapproved indication [Unknown]
  - Drug ineffective [Unknown]
